FAERS Safety Report 6165399-7 (Version None)
Quarter: 2009Q2

REPORT INFORMATION
  Report Type: 
  Country: None (occurrence: None)
  Receive Date: 20090423
  Receipt Date: 20090412
  Transmission Date: 20091009
  Serious: Yes (Other)
  Sender: FDA-Public Use
  Company Number: CL-PFIZER INC-2009198316

PATIENT

DRUGS (1)
  1. GENOTONORM [Suspect]
     Dosage: UNK

REACTIONS (1)
  - EPILEPSY [None]
